FAERS Safety Report 15468538 (Version 1)
Quarter: 2018Q4

REPORT INFORMATION
  Report Type: Spontaneous
  Country: US (occurrence: US)
  Receive Date: 20181005
  Receipt Date: 20181005
  Transmission Date: 20190204
  Serious: No
  Sender: FDA-Public Use
  Company Number: US-SA-2018SA274147

PATIENT
  Age: 38 Year
  Sex: Male

DRUGS (4)
  1. ATROVENT [Concomitant]
     Active Substance: IPRATROPIUM BROMIDE
  2. FENTANYL. [Concomitant]
     Active Substance: FENTANYL
  3. DUPIXENT [Suspect]
     Active Substance: DUPILUMAB
     Indication: DERMATITIS ATOPIC
     Dosage: 300 MG, QOW
     Route: 058
     Dates: start: 20171021
  4. XYZAL [Concomitant]
     Active Substance: LEVOCETIRIZINE DIHYDROCHLORIDE

REACTIONS (3)
  - Skin disorder [Not Recovered/Not Resolved]
  - Product dose omission [Not Recovered/Not Resolved]
  - Dermatitis [Not Recovered/Not Resolved]

NARRATIVE: CASE EVENT DATE: 20180927
